FAERS Safety Report 12552734 (Version 1)
Quarter: 2016Q3

REPORT INFORMATION
  Report Type: Spontaneous
  Country: US (occurrence: US)
  Receive Date: 20160713
  Receipt Date: 20160713
  Transmission Date: 20161109
  Serious: No
  Sender: FDA-Public Use
  Company Number: US-009507513-1607USA002573

PATIENT
  Age: 25 Year
  Sex: Female
  Weight: 64.4 kg

DRUGS (2)
  1. NUVARING [Suspect]
     Active Substance: ETHINYL ESTRADIOL\ETONOGESTREL
     Indication: CONTRACEPTION
     Dosage: UNK
     Route: 067
     Dates: start: 201606
  2. NUVARING [Suspect]
     Active Substance: ETHINYL ESTRADIOL\ETONOGESTREL
     Indication: POLYCYSTIC OVARIES

REACTIONS (4)
  - Vaginal haemorrhage [Unknown]
  - Menorrhagia [Unknown]
  - Muscle spasms [Unknown]
  - Product use issue [Unknown]

NARRATIVE: CASE EVENT DATE: 2016
